FAERS Safety Report 6732011-5 (Version None)
Quarter: 2010Q2

REPORT INFORMATION
  Report Type: 
  Country: None (occurrence: None)
  Receive Date: 20100519
  Receipt Date: 20100507
  Transmission Date: 20101027
  Serious: Yes (Other)
  Sender: FDA-Public Use
  Company Number: PHHY2010US29951

PATIENT
  Sex: Female

DRUGS (6)
  1. GLEEVEC [Suspect]
     Indication: GASTROINTESTINAL STROMAL TUMOUR
     Dosage: UNK
     Dates: start: 20100427
  2. FERREX [Concomitant]
     Dosage: 150 MG
  3. TOPROL-XL [Concomitant]
     Dosage: 25 MG
  4. PRILOSEC [Concomitant]
     Dosage: 20 MG
  5. COZAAR [Concomitant]
     Dosage: 50 MG
  6. FISH OIL [Concomitant]

REACTIONS (3)
  - ANAEMIA [None]
  - HAEMORRHAGE [None]
  - SURGERY [None]
